FAERS Safety Report 4866745-4 (Version None)
Quarter: 2005Q4

REPORT INFORMATION
  Report Type: 
  Country: None (occurrence: None)
  Receive Date: 20051221
  Receipt Date: 20051205
  Transmission Date: 20060501
  Serious: Yes (Other)
  Sender: FDA-Public Use
  Company Number: L05-NLD-05636-01

PATIENT
  Age: 35 Year
  Sex: Female
  Weight: 72 kg

DRUGS (7)
  1. CARBAMAZEPINE [Suspect]
     Indication: EPILEPSY
     Dosage: UNK
     Route: 065
  2. PHENOBARBITAL [Suspect]
     Indication: EPILEPSY
     Dosage: UNK
     Route: 065
  3. VALPROIC ACID [Suspect]
     Indication: EPILEPSY
     Dosage: UNK
     Route: 065
  4. VALPROIC ACID [Suspect]
     Indication: EPILEPSY
     Dosage: UNK
     Route: 065
  5. ETHOSUXIMIDE [Suspect]
     Indication: EPILEPSY
     Dosage: UNK
     Route: 065
  6. OXCARBAZEPINE [Suspect]
     Indication: EPILEPSY
     Dosage: UNK
     Route: 065
  7. LAMOTRIGINE [Suspect]
     Indication: EPILEPSY
     Dosage: UNK
     Route: 065

REACTIONS (10)
  - BACK PAIN [None]
  - COMPLICATED FRACTURE [None]
  - DRUG EXPOSURE DURING PREGNANCY [None]
  - FALL [None]
  - GRAND MAL CONVULSION [None]
  - OSTEOLYSIS [None]
  - OSTEOPENIA [None]
  - PELVIC FRACTURE [None]
  - PREGNANCY [None]
  - THORACIC VERTEBRAL FRACTURE [None]
